FAERS Safety Report 9129865 (Version 3)
Quarter: 2013Q2

REPORT INFORMATION
  Report Type: Spontaneous
  Country: CA (occurrence: CA)
  Receive Date: 20130125
  Receipt Date: 20130401
  Transmission Date: 20140414
  Serious: Yes (Death, Other)
  Sender: FDA-Public Use
  Company Number: CA-PFIZER INC-2013031807

PATIENT
  Age: 31 Year
  Sex: Female

DRUGS (7)
  1. LYRICA [Suspect]
     Indication: ARTHRALGIA
     Dosage: 150 MG, 2X/DAY
  2. METHAMPHETAMINE [Suspect]
  3. METHADONE [Concomitant]
     Indication: DRUG DEPENDENCE
     Dosage: 100 IN THE MORNING, 40MG AT NIGHT
  4. CARBAMAZEPINE [Concomitant]
     Indication: EPILEPSY
     Dosage: 600 MG, 1X/DAY
  5. OLANZAPINE [Concomitant]
     Indication: PERSONALITY DISORDER
     Dosage: 20 MG, UNK
  6. TRAZODONE [Concomitant]
     Indication: SLEEP DISORDER
     Dosage: 100 MG, UNK
  7. PANTOPRAZOLE [Concomitant]
     Indication: ABDOMINAL DISCOMFORT
     Dosage: 40 MG, UNK

REACTIONS (4)
  - Epilepsy [Fatal]
  - Drug abuser [Unknown]
  - Overdose [Unknown]
  - Off label use [Unknown]
